FAERS Safety Report 12990395 (Version 1)
Quarter: 2016Q4

REPORT INFORMATION
  Report Type: Spontaneous
  Country: GB (occurrence: GB)
  Receive Date: 20161201
  Receipt Date: 20161201
  Transmission Date: 20170207
  Serious: Yes (Hospitalization, Other)
  Sender: FDA-Public Use
  Company Number: GB-PFIZER INC-2016547125

PATIENT
  Age: 59 Year
  Sex: Male

DRUGS (13)
  1. OXALIPLATIN. [Suspect]
     Active Substance: OXALIPLATIN
     Indication: GASTROOESOPHAGEAL CANCER
     Dosage: 160 MG, UNK
     Route: 042
     Dates: start: 20130627
  2. ONDANSETRON [Concomitant]
     Active Substance: ONDANSETRON
     Indication: PROPHYLAXIS OF NAUSEA AND VOMITING
     Dosage: DOSAGE WAS REPORTED AS 8 MG
     Route: 042
     Dates: start: 20130627
  3. PARACETAMOL [Concomitant]
     Active Substance: ACETAMINOPHEN
     Indication: PAIN
     Dosage: DOSAGE WAS REPORTED AS 1 G
     Route: 048
     Dates: start: 20130517, end: 20130715
  4. SUCRALFATE. [Concomitant]
     Active Substance: SUCRALFATE
     Dosage: DOSAGE WAS REPORTED AS: DAILY DOSE: 1 G
     Route: 048
     Dates: start: 20120817
  5. TINZAPARIN [Concomitant]
     Active Substance: TINZAPARIN
     Indication: DEEP VEIN THROMBOSIS
     Dosage: DOSAGE WAS REPORTED AS 14000 IU
     Route: 058
     Dates: start: 20130809
  6. FLUOROURACIL. [Suspect]
     Active Substance: FLUOROURACIL
     Indication: GASTROOESOPHAGEAL CANCER
     Dosage: 750 MG, UNK
     Route: 040
     Dates: start: 20130627
  7. CITALOPRAM [Concomitant]
     Active Substance: CITALOPRAM HYDROBROMIDE
     Dosage: DOSAGE WAS REPORTED AS: DAILY DOSE: 10 MG
     Route: 048
     Dates: start: 20120720
  8. PLACEBO [Suspect]
     Active Substance: UNSPECIFIED INGREDIENT
     Indication: GASTROOESOPHAGEAL CANCER
     Dosage: UNK
     Route: 042
     Dates: start: 20130627
  9. DEXAMETHASONE. [Concomitant]
     Active Substance: DEXAMETHASONE
     Indication: PROPHYLAXIS OF NAUSEA AND VOMITING
     Dosage: DOSAGE WAS REPORTED AS 8 MG
     Route: 042
     Dates: start: 20130627
  10. IBUPROFEN. [Concomitant]
     Active Substance: IBUPROFEN
     Indication: PAIN
     Dosage: DOSAGE WAS REPORTED AS: DAILY DOSE: 400 MG
     Route: 048
     Dates: start: 20130709
  11. FLUOROURACIL. [Suspect]
     Active Substance: FLUOROURACIL
     Dosage: 4600 MG, UNK
     Route: 041
     Dates: start: 20130627
  12. FOLINIC ACID [Suspect]
     Active Substance: LEUCOVORIN
     Indication: GASTROOESOPHAGEAL CANCER
     Dosage: 750 MG, UNK
     Route: 042
     Dates: start: 20130627
  13. DOMPERIDONE [Concomitant]
     Active Substance: DOMPERIDONE
     Indication: NAUSEA
     Dosage: DOSAGE WAS REPORTED AS: DAILY DOSE: 10 MG
     Route: 048
     Dates: start: 20130517

REACTIONS (2)
  - Neutropenia [Recovered/Resolved]
  - Deep vein thrombosis [Unknown]

NARRATIVE: CASE EVENT DATE: 20130806
